FAERS Safety Report 21746728 (Version 2)
Quarter: 2023Q2

REPORT INFORMATION
  Report Type: Spontaneous
  Country: US (occurrence: US)
  Receive Date: 20221219
  Receipt Date: 20230612
  Transmission Date: 20230722
  Serious: No
  Sender: FDA-Public Use
  Company Number: US-BIOGEN-2022BI01175896

PATIENT
  Sex: Female

DRUGS (2)
  1. TECFIDERA [Suspect]
     Active Substance: DIMETHYL FUMARATE
     Indication: Multiple sclerosis
     Dosage: 1 CAPSULE 240 MG DAILY
     Route: 050
  2. TECFIDERA [Suspect]
     Active Substance: DIMETHYL FUMARATE
     Dosage: 1 CAPSULE 240 MG DAILY
     Route: 050

REACTIONS (3)
  - Prescribed underdose [Unknown]
  - Intentional product misuse [Unknown]
  - Flushing [Unknown]
